FAERS Safety Report 8444110-0 (Version None)
Quarter: 2012Q2

REPORT INFORMATION
  Report Type: 
  Country: None (occurrence: None)
  Receive Date: 20120618
  Receipt Date: 20120604
  Transmission Date: 20120825
  Serious: Yes (Hospitalization)
  Sender: FDA-Public Use
  Company Number: IT-ASTRAZENECA-2012SE37085

PATIENT
  Sex: Male

DRUGS (3)
  1. ATENOLOL AND CHLORTHALIDONE [Suspect]
     Indication: HYPERTENSION
     Route: 048
     Dates: start: 20120326, end: 20120526
  2. PLAUNAC (OLMESARTAN MEDOXOMIL) [Concomitant]
  3. NORVASC (AMLOEDIPINE) [Concomitant]

REACTIONS (4)
  - BALANCE DISORDER [None]
  - VERTIGO [None]
  - HYPOKALAEMIA [None]
  - FEELING ABNORMAL [None]
